FAERS Safety Report 5738194-8 (Version None)
Quarter: 2008Q2

REPORT INFORMATION
  Report Type: 
  Country: None (occurrence: None)
  Receive Date: 20080514
  Receipt Date: 20080502
  Transmission Date: 20081010
  Serious: Yes (Other)
  Sender: FDA-Public Use
  Company Number: US-PFIZER INC-2008023629

PATIENT
  Sex: Female
  Weight: 72.7 kg

DRUGS (3)
  1. NEURONTIN [Suspect]
     Indication: NEURALGIA
     Route: 048
  2. NORVASC [Concomitant]
     Indication: HYPERTENSION
  3. PRINZIDE [Concomitant]
     Indication: HYPERTENSION

REACTIONS (3)
  - DRUG INEFFECTIVE [None]
  - JAW DISORDER [None]
  - SPEECH DISORDER [None]
